FAERS Safety Report 9366268 (Version 1)
Quarter: 2013Q2

REPORT INFORMATION
  Report Type: Spontaneous
  Country: US (occurrence: None)
  Receive Date: 20130620
  Receipt Date: 20130620
  Transmission Date: 20140414
  Serious: Yes (Hospitalization)
  Sender: FDA-Public Use
  Company Number: 2013AP006059

PATIENT
  Age: 53 Year
  Sex: Male

DRUGS (2)
  1. GABAPENTIN [Suspect]
  2. METHADONE [Suspect]

REACTIONS (5)
  - Coma [None]
  - Respiratory failure [None]
  - Accidental overdose [None]
  - Drug abuse [None]
  - Drug abuse [None]
